FAERS Safety Report 4808910-8 (Version None)
Quarter: 2005Q4

REPORT INFORMATION
  Report Type: 
  Country: None (occurrence: None)
  Receive Date: 20051021
  Receipt Date: 20030124
  Transmission Date: 20060501
  Serious: Yes (Hospitalization)
  Sender: FDA-Public Use
  Company Number: DE_030110571

PATIENT
  Sex: Female

DRUGS (2)
  1. ZYPREXA [Suspect]
     Dates: start: 20021201, end: 20030124
  2. VALPROATE SODIUM [Concomitant]

REACTIONS (2)
  - GRANULOCYTOPENIA [None]
  - LEUKOPENIA [None]
